FAERS Safety Report 16344793 (Version 1)
Quarter: 2019Q2

REPORT INFORMATION
  Report Type: Report from Study
  Country: None (occurrence: US)
  Receive Date: 20190522
  Receipt Date: 20190522
  Transmission Date: 20190711
  Serious: Yes (Hospitalization, Other)
  Sender: FDA-Public Use
  Company Number: US-ABBVIE-19K-163-2623485-00

PATIENT
  Age: 59 Year
  Sex: Female

DRUGS (1)
  1. HUMIRA [Suspect]
     Active Substance: ADALIMUMAB
     Indication: CROHN^S DISEASE
     Dosage: HUMIRA CF
     Route: 058
     Dates: start: 20141128, end: 201805

REACTIONS (13)
  - Cough [Unknown]
  - Therapeutic response shortened [Unknown]
  - Intestinal resection [Recovered/Resolved]
  - Drug specific antibody present [Unknown]
  - Cystitis [Not Recovered/Not Resolved]
  - Cholecystectomy [Unknown]
  - Ill-defined disorder [Unknown]
  - Crohn^s disease [Not Recovered/Not Resolved]
  - Intestinal obstruction [Unknown]
  - Incisional hernia [Unknown]
  - Feeling cold [Unknown]
  - Abdominal hernia [Unknown]
  - Chills [Unknown]

NARRATIVE: CASE EVENT DATE: 201601
